FAERS Safety Report 7771024-1 (Version None)
Quarter: 2011Q3

REPORT INFORMATION
  Report Type: 
  Country: None (occurrence: None)
  Receive Date: 20110922
  Receipt Date: 20110127
  Transmission Date: 20111222
  Serious: No
  Sender: FDA-Public Use
  Company Number: US-ASTRAZENECA-2011SE04801

PATIENT
  Age: 47 Year
  Sex: Female
  Weight: 90.7 kg

DRUGS (7)
  1. SEROQUEL [Suspect]
     Route: 048
     Dates: start: 20070101
  2. ZOLOFT [Concomitant]
     Indication: DEPRESSION
  3. RANITADINE [Concomitant]
     Indication: GASTROOESOPHAGEAL REFLUX DISEASE
  4. PAXIL [Concomitant]
     Indication: DEPRESSION
  5. METFORMIN [Concomitant]
     Indication: DIABETES MELLITUS
  6. SEROQUEL [Suspect]
     Indication: BIPOLAR DISORDER
     Route: 048
     Dates: start: 20070101
  7. HTN MEDICATION (2 KINDS) [Concomitant]
     Indication: HYPERTENSION

REACTIONS (2)
  - DRUG DOSE OMISSION [None]
  - INSOMNIA [None]
